FAERS Safety Report 24876217 (Version 1)
Quarter: 2025Q1

REPORT INFORMATION
  Report Type: Spontaneous
  Country: US (occurrence: US)
  Receive Date: 20250123
  Receipt Date: 20250123
  Transmission Date: 20250409
  Serious: No
  Sender: AUROBINDO
  Company Number: US-AUROBINDO-AUR-APL-2024-005717

PATIENT
  Age: 30 Year
  Sex: Female
  Weight: 176.78 kg

DRUGS (2)
  1. PROGESTERONE [Suspect]
     Active Substance: PROGESTERONE
     Indication: Product used for unknown indication
     Route: 065
     Dates: start: 20240121
  2. DELESTROGEN [Concomitant]
     Active Substance: ESTRADIOL VALERATE
     Indication: Product used for unknown indication
     Route: 065
     Dates: start: 20240118

REACTIONS (3)
  - Hypersensitivity [Unknown]
  - Rash [Recovering/Resolving]
  - Product contamination physical [Unknown]
